FAERS Safety Report 5488745-6 (Version None)
Quarter: 2007Q4

REPORT INFORMATION
  Report Type: 
  Country: None (occurrence: None)
  Receive Date: 20071017
  Receipt Date: 20071010
  Transmission Date: 20080405
  Serious: Yes (Other)
  Sender: FDA-Public Use
  Company Number: CH-ROXANE LABORATORIES, INC-2007-BP-22460RO

PATIENT
  Age: 28 Year
  Sex: Male

DRUGS (24)
  1. CYCLOPHOSPHAMIDE [Suspect]
     Indication: DIFFUSE LARGE B-CELL LYMPHOMA
  2. PREDNISONE [Suspect]
     Indication: DIFFUSE LARGE B-CELL LYMPHOMA
  3. PREDNISONE [Suspect]
     Indication: IMMUNOSUPPRESSION
  4. METHOTREXATE [Suspect]
     Indication: PROPHYLAXIS AGAINST GRAFT VERSUS HOST DISEASE
  5. DOXORUBICIN HCL [Suspect]
     Indication: DIFFUSE LARGE B-CELL LYMPHOMA
  6. VINCRISTINE [Suspect]
     Indication: DIFFUSE LARGE B-CELL LYMPHOMA
  7. ETOPOSIDE [Suspect]
     Indication: DIFFUSE LARGE B-CELL LYMPHOMA
  8. ETOPOSIDE [Suspect]
  9. METHYLPREDNISOLONE [Suspect]
     Indication: DIFFUSE LARGE B-CELL LYMPHOMA
  10. CYTARABINE [Suspect]
     Indication: DIFFUSE LARGE B-CELL LYMPHOMA
  11. CYTARABINE [Suspect]
  12. CISPLATIN [Suspect]
     Indication: DIFFUSE LARGE B-CELL LYMPHOMA
  13. RITUXIMAB [Suspect]
     Indication: DIFFUSE LARGE B-CELL LYMPHOMA
  14. CARMUSTINE [Suspect]
     Indication: DIFFUSE LARGE B-CELL LYMPHOMA
  15. MELPHALAN [Suspect]
     Indication: DIFFUSE LARGE B-CELL LYMPHOMA
  16. FLUDARABINE PHOSPHATE [Suspect]
     Indication: BONE MARROW CONDITIONING REGIMEN
  17. CYCLOSPORINE [Suspect]
     Indication: PROPHYLAXIS AGAINST GRAFT VERSUS HOST DISEASE
  18. CYCLOSPORINE [Suspect]
     Indication: IMMUNOSUPPRESSION
  19. GANCICLOVIR [Concomitant]
     Indication: CYTOMEGALOVIRUS TEST
  20. PIPERAZILLIN/TAZOBACTAM [Concomitant]
     Indication: EVIDENCE BASED TREATMENT
  21. DOXYCYCLINE [Concomitant]
     Indication: EVIDENCE BASED TREATMENT
  22. IMMUNE GLOBULIN INTRAVENOUS (HUMAN) [Concomitant]
     Indication: EVIDENCE BASED TREATMENT
     Route: 042
  23. STEROID [Concomitant]
     Indication: GRAFT VERSUS HOST DISEASE
  24. VORICONAZOLE [Concomitant]
     Indication: BRONCHOPULMONARY ASPERGILLOSIS

REACTIONS (8)
  - APLASIA [None]
  - CYTOMEGALOVIRUS TEST [None]
  - GRAFT VERSUS HOST DISEASE [None]
  - HYPOGAMMAGLOBULINAEMIA [None]
  - LYMPHOPENIA [None]
  - PNEUMONITIS [None]
  - POLYARTHRITIS [None]
  - RENAL FAILURE ACUTE [None]
